FAERS Safety Report 10118493 (Version 1)
Quarter: 2014Q2

REPORT INFORMATION
  Report Type: Spontaneous
  Country: IT (occurrence: IT)
  Receive Date: 20140425
  Receipt Date: 20140425
  Transmission Date: 20141212
  Serious: Yes (Other)
  Sender: FDA-Public Use
  Company Number: IT-TEVA-476789ISR

PATIENT
  Age: 28 Year
  Sex: Female

DRUGS (2)
  1. SERTRALINA TEVA 50 MG [Suspect]
     Dosage: 75 DOSAGE FORMS DAILY;
     Route: 048
     Dates: start: 20130701, end: 20130701
  2. LEXOTAN 2.5 MG/ML [Suspect]
     Dosage: 20 ML DAILY;
     Route: 048
     Dates: start: 20130701, end: 20130701

REACTIONS (3)
  - Sedation [Recovering/Resolving]
  - Drug abuse [Recovering/Resolving]
  - Intentional self-injury [Recovering/Resolving]
